FAERS Safety Report 4463373-X (Version None)
Quarter: 2004Q3

REPORT INFORMATION
  Report Type: 
  Country: None (occurrence: None)
  Receive Date: 20040928
  Receipt Date: 20040915
  Transmission Date: 20050211
  Serious: Yes (Hospitalization)
  Sender: FDA-Public Use
  Company Number: 2004060608

PATIENT
  Age: 84 Year
  Sex: Female

DRUGS (3)
  1. ZOLOFT [Suspect]
     Indication: ILL-DEFINED DISORDER
     Dosage: 50 MG, ORAL
     Route: 048
     Dates: start: 20040624, end: 20040716
  2. ACENOCOUMAROL (ACENOCOUMAROL) [Suspect]
     Indication: PULMONARY EMBOLISM
     Dosage: 1 MG, ORAL
     Route: 048
     Dates: start: 20040421
  3. FERROUS SULFATE TAB [Concomitant]

REACTIONS (17)
  - AGRANULOCYTOSIS [None]
  - ASPHYXIA [None]
  - CEREBRAL HAEMATOMA [None]
  - CEREBROVASCULAR ACCIDENT [None]
  - DEEP VEIN THROMBOSIS [None]
  - DEPRESSION [None]
  - DYSPHAGIA [None]
  - EPISTAXIS [None]
  - HAEMOPTYSIS [None]
  - HEMIPARESIS [None]
  - INFLAMMATION [None]
  - INTERNATIONAL NORMALISED RATIO INCREASED [None]
  - INTERSTITIAL LUNG DISEASE [None]
  - IRON DEFICIENCY ANAEMIA [None]
  - LUNG DISORDER [None]
  - PROTHROMBIN LEVEL DECREASED [None]
  - PULMONARY EMBOLISM [None]
